FAERS Safety Report 21596164 (Version 1)
Quarter: 2022Q4

REPORT INFORMATION
  Report Type: Spontaneous
  Country: JP (occurrence: JP)
  Receive Date: 20221115
  Receipt Date: 20221115
  Transmission Date: 20230113
  Serious: Yes (Hospitalization)
  Sender: FDA-Public Use
  Company Number: JP-GSKNCCC-Case-01610414_AE-64300

PATIENT

DRUGS (2)
  1. ATOVAQUONE [Suspect]
     Active Substance: ATOVAQUONE
     Indication: Prophylaxis
     Dosage: 10 ML, QD
     Route: 048
  2. ATOVAQUONE [Suspect]
     Active Substance: ATOVAQUONE
     Dosage: 10 ML, QD
     Route: 050

REACTIONS (3)
  - Fracture [Unknown]
  - Feeding disorder [Unknown]
  - Product use issue [Unknown]
